FAERS Safety Report 8760790 (Version 3)
Quarter: 2012Q4

REPORT INFORMATION
  Report Type: Report from Study
  Country: JP (occurrence: JP)
  Receive Date: 20120829
  Receipt Date: 20121022
  Transmission Date: 20130627
  Serious: Yes (Death, Life-Threatening)
  Sender: FDA-Public Use
  Company Number: JP-MPIJNJ-2012-05849

PATIENT

DRUGS (9)
  1. VELCADE [Suspect]
     Indication: MULTIPLE MYELOMA
     Dosage: 1.3 mg/m2, UNK
     Route: 042
     Dates: start: 20120221, end: 20120323
  2. DEXAMETHASONE [Concomitant]
     Indication: MULTIPLE MYELOMA
     Dosage: 33 mg, UNK
  3. CYCLOPHOSPHAMIDE [Concomitant]
     Indication: MULTIPLE MYELOMA
     Dosage: 450 mg, UNK
  4. MS CONTIN [Concomitant]
     Indication: BONE PAIN
     Dosage: 120 mg, UNK
     Route: 048
     Dates: start: 20120215, end: 20120502
  5. CEFOZOPRAN HYDROCHLORIDE [Concomitant]
     Indication: PYREXIA
     Dosage: UNK
     Dates: start: 20120416, end: 20120424
  6. FENTANYL CITRATE [Concomitant]
     Indication: BONE PAIN
     Dosage: UNK
     Route: 062
     Dates: start: 20120503, end: 20120508
  7. FUNGUARD [Concomitant]
     Indication: PNEUMONIA
     Dosage: 150 mg, qd
     Route: 042
     Dates: start: 20120420, end: 20120504
  8. BAKTAR [Concomitant]
     Indication: PNEUMONIA
     Dosage: UNK
     Dates: start: 20120420, end: 20120506
  9. DENOSINE                           /00238401/ [Concomitant]
     Indication: PNEUMONIA
     Dosage: 250 mg, UNK
     Route: 042
     Dates: start: 20120422, end: 20120504

REACTIONS (2)
  - Plasma cell myeloma [Fatal]
  - Pneumonia cytomegaloviral [Unknown]
